FAERS Safety Report 5400074-5 (Version None)
Quarter: 2007Q3

REPORT INFORMATION
  Report Type: 
  Country: None (occurrence: None)
  Receive Date: 20070725
  Receipt Date: 20070716
  Transmission Date: 20080115
  Serious: Yes (Hospitalization)
  Sender: FDA-Public Use
  Company Number: THQ2007A00691

PATIENT
  Age: 57 Year
  Sex: Male

DRUGS (2)
  1. ACTOS [Suspect]
     Indication: DIABETES MELLITUS
     Dosage: 15 MG 915 MG, 1 IN 1 D)
     Route: 048
     Dates: start: 20031211, end: 20040404
  2. METFORMIN HCL [Concomitant]

REACTIONS (1)
  - COLON OPERATION [None]
